FAERS Safety Report 5840874-0 (Version None)
Quarter: 2008Q3

REPORT INFORMATION
  Report Type: 
  Country: None (occurrence: None)
  Receive Date: 20080811
  Receipt Date: 20080522
  Transmission Date: 20090109
  Serious: No
  Sender: FDA-Public Use
  Company Number: US-BOEHRINGER INGELHEIM GMBH, GERMANY-2006-BP-02486BP

PATIENT
  Sex: Male

DRUGS (38)
  1. MIRAPEX [Suspect]
     Indication: PARKINSON'S DISEASE
     Route: 048
     Dates: start: 20031021, end: 20050801
  2. GLUCOTROL [Concomitant]
     Indication: DIABETES MELLITUS
     Dates: start: 20031024, end: 20040101
  3. GLUCOVANCE [Concomitant]
     Indication: DIABETES MELLITUS
     Dates: start: 20040101, end: 20041201
  4. GLUCOVANCE [Concomitant]
     Dates: start: 20050512
  5. ALTACE [Concomitant]
     Indication: HYPERTENSION
     Dates: start: 20030930
  6. SINEMET [Concomitant]
     Indication: PARKINSON'S DISEASE
     Route: 048
     Dates: start: 20040204, end: 20040430
  7. SINEMET [Concomitant]
     Route: 048
     Dates: start: 20050810
  8. SYNTHROID [Concomitant]
     Indication: HYPOTHYROIDISM
  9. VITAMIN E [Concomitant]
  10. CALCIUM SUPPLEMENTS [Concomitant]
  11. MULTI-VITAMIN [Concomitant]
  12. DIOVAN [Concomitant]
     Indication: HYPERTENSION
     Dates: start: 20030301, end: 20030901
  13. DIOVAN [Concomitant]
     Dates: start: 20030319
  14. PROTONIX [Concomitant]
     Dates: start: 20041124
  15. LANTUS [Concomitant]
     Indication: DIABETES MELLITUS
     Dates: start: 20041201, end: 20050201
  16. LANTUS [Concomitant]
     Dates: start: 20050201
  17. PROVIGIL [Concomitant]
     Indication: SOMNOLENCE
     Dates: start: 20050901
  18. AMBIEN [Concomitant]
     Indication: INSOMNIA
  19. OXYTROL [Concomitant]
     Indication: HYPERTONIC BLADDER
  20. DITROPAN [Concomitant]
     Indication: HYPERTONIC BLADDER
     Dates: start: 20050411
  21. ZETIA [Concomitant]
     Dates: start: 20040401
  22. NEXIUM [Concomitant]
     Indication: GASTROOESOPHAGEAL REFLUX DISEASE
     Dates: start: 20040401
  23. ANTIVERT [Concomitant]
     Indication: DIZZINESS
     Dates: start: 20040401
  24. LIPITOR [Concomitant]
     Dates: start: 20040401
  25. LIPITOR [Concomitant]
     Dates: start: 20050518, end: 20051101
  26. ACIPHEX [Concomitant]
     Dates: start: 20041001
  27. ASPIRIN [Concomitant]
     Indication: PROPHYLAXIS
     Dates: start: 20050401
  28. ASPIRIN [Concomitant]
     Dates: start: 20060131
  29. FLOMAX [Concomitant]
     Dates: start: 20060428
  30. MODAFINIL [Concomitant]
     Indication: SOMNOLENCE
     Dates: start: 20050810
  31. AMOXICILLIN [Concomitant]
     Indication: URINARY TRACT INFECTION
     Route: 048
     Dates: start: 20041201
  32. FLAX SEED OIL [Concomitant]
  33. FISH OIL [Concomitant]
  34. VITAMIN B COMPLEX CAP [Concomitant]
  35. TOPROL-XL [Concomitant]
     Dates: start: 20040501
  36. PLAVIX [Concomitant]
     Route: 048
  37. VYTORIN [Concomitant]
     Route: 048
  38. FLEXERIL [Concomitant]

REACTIONS (29)
  - ANXIETY [None]
  - BARRETT'S OESOPHAGUS [None]
  - CATARACT OPERATION [None]
  - CLAUSTROPHOBIA [None]
  - COUGH [None]
  - DIZZINESS [None]
  - DYSPEPSIA [None]
  - EMOTIONAL DISTRESS [None]
  - ERECTILE DYSFUNCTION [None]
  - FATIGUE [None]
  - GASTRIC ULCER [None]
  - GASTROOESOPHAGEAL REFLUX DISEASE [None]
  - GLOSSODYNIA [None]
  - HYPERTONIC BLADDER [None]
  - HYPOAESTHESIA [None]
  - INJURY [None]
  - LABYRINTHITIS [None]
  - LOBAR PNEUMONIA [None]
  - NAUSEA [None]
  - OBSESSIVE-COMPULSIVE DISORDER [None]
  - OEDEMA PERIPHERAL [None]
  - ORAL CANDIDIASIS [None]
  - OROPHARYNGEAL PAIN [None]
  - PARAESTHESIA [None]
  - PATHOLOGICAL GAMBLING [None]
  - SINUS CONGESTION [None]
  - SOMNOLENCE [None]
  - URINARY RETENTION [None]
  - URINARY TRACT INFECTION [None]
